FAERS Safety Report 8908996 (Version 1)
Quarter: 2012Q4

REPORT INFORMATION
  Report Type: 
  Country: US (occurrence: US)
  Receive Date: 20121113
  Receipt Date: 20121113
  Transmission Date: 20130627
  Serious: No
  Sender: FDA-Public Use
  Company Number: US-AMGEN-USASP2012011468

PATIENT
  Age: 63 Year
  Sex: Male
  Weight: 92 kg

DRUGS (12)
  1. ENBREL [Suspect]
     Indication: PRODUCT USED FOR UNKNOWN INDICATION
     Dosage: 50 mg, 2 times/wk
     Route: 058
  2. NAPROSYN /00256201/ [Concomitant]
     Dosage: 500 mg, UNK
  3. DIOVAN [Concomitant]
     Dosage: 160 mg, UNK
  4. TEKTURNA [Concomitant]
     Dosage: 150 mg, UNK
  5. VITAMIN E                          /00110501/ [Concomitant]
     Dosage: 1000 IU, UNK
  6. NEXIUM                             /01479302/ [Concomitant]
     Dosage: 20 mg, UNK
  7. CRESTOR [Concomitant]
     Dosage: 10 mg, UNK
  8. LEXAPRO [Concomitant]
     Dosage: 10 mg, UNK
  9. VITAMIN D /00107901/ [Concomitant]
     Dosage: 1000 IU, UNK
  10. ZETIA [Concomitant]
     Dosage: 10 mg, UNK
  11. VITAMIN C                          /00008001/ [Concomitant]
     Dosage: 1000 mg, UNK
  12. HYDROCHLOROTHIAZIDE WITH TRIAMTERENE [Concomitant]
     Dosage: 25 mg, UNK

REACTIONS (1)
  - Bronchitis [Unknown]
